FAERS Safety Report 17761652 (Version 1)
Quarter: 2020Q2

REPORT INFORMATION
  Report Type: Spontaneous
  Country: FR (occurrence: FR)
  Receive Date: 20200508
  Receipt Date: 20200508
  Transmission Date: 20200714
  Serious: Yes (Hospitalization)
  Sender: FDA-Public Use
  Company Number: FR-CADILA HEALTHCARE LIMITED-FR-ZYDUS-025042

PATIENT

DRUGS (1)
  1. PAROXETINE. [Suspect]
     Active Substance: PAROXETINE
     Indication: PRODUCT USED FOR UNKNOWN INDICATION
     Dosage: 10 MILLIGRAM,(INTERVAL :1 DAYS)
     Route: 048
     Dates: start: 20180601, end: 20180707

REACTIONS (6)
  - Tremor [Recovering/Resolving]
  - General physical health deterioration [Recovering/Resolving]
  - Extrapyramidal disorder [Recovering/Resolving]
  - Diarrhoea [Recovering/Resolving]
  - Fall [Recovering/Resolving]
  - Balance disorder [Recovering/Resolving]

NARRATIVE: CASE EVENT DATE: 20180601
